FAERS Safety Report 21313045 (Version 1)
Quarter: 2022Q3

REPORT INFORMATION
  Report Type: Report from Study
  Country: FR (occurrence: None)
  Receive Date: 20220909
  Receipt Date: 20220909
  Transmission Date: 20221026
  Serious: Yes (Other)
  Sender: FDA-Public Use
  Company Number: FR-Merck Healthcare KGaA-9348607

PATIENT
  Sex: Female
  Weight: 68 kg

DRUGS (1)
  1. LEVOTHYROXINE [Suspect]
     Active Substance: LEVOTHYROXINE
     Indication: Product used for unknown indication
     Dosage: 137 (UNIT UNSPECIFIED)

REACTIONS (6)
  - Thyroid cancer [Unknown]
  - Homicidal ideation [Unknown]
  - Blood folate increased [Unknown]
  - Alopecia [Unknown]
  - Affective disorder [Unknown]
  - Blood thyroid stimulating hormone decreased [Unknown]
